FAERS Safety Report 4893130-1 (Version None)
Quarter: 2005Q4

REPORT INFORMATION
  Report Type: 
  Country: None (occurrence: None)
  Receive Date: 20051223
  Receipt Date: 20050927
  Transmission Date: 20060501
  Serious: No
  Sender: FDA-Public Use
  Company Number: 218014

PATIENT
  Age: 63 Year
  Sex: Female

DRUGS (4)
  1. AVASTIN [Suspect]
     Indication: RECTAL CANCER
     Dosage: 5 MG, Q2W
     Dates: start: 20050706, end: 20050803
  2. CAMPTOSAR [Concomitant]
  3. ARANESP [Concomitant]
  4. ASPIRIN [Concomitant]

REACTIONS (1)
  - RECTAL HAEMORRHAGE [None]
